FAERS Safety Report 24864850 (Version 5)
Quarter: 2025Q3

REPORT INFORMATION
  Report Type: Spontaneous
  Country: US (occurrence: US)
  Receive Date: 20250121
  Receipt Date: 20250811
  Transmission Date: 20251021
  Serious: Yes (Other)
  Sender: SANOFI AVENTIS
  Company Number: US-SANOFI-02376025

PATIENT
  Age: 82 Year
  Sex: Female

DRUGS (1)
  1. DUPIXENT [Suspect]
     Active Substance: DUPILUMAB
     Indication: Asthma
     Dosage: 300 MG, QOW
     Route: 058
     Dates: start: 20210723

REACTIONS (11)
  - Nephrolithiasis [Unknown]
  - Throat irritation [Unknown]
  - Cough [Unknown]
  - Vomiting [Unknown]
  - Muscle spasms [Unknown]
  - Dysphagia [Unknown]
  - Urinary tract infection [Unknown]
  - Myalgia [Unknown]
  - Accidental exposure to product [Unknown]
  - Exposure via skin contact [Unknown]
  - Inappropriate schedule of product administration [Unknown]
